FAERS Safety Report 20455463 (Version 3)
Quarter: 2022Q1

REPORT INFORMATION
  Report Type: Report from Study
  Country: CN (occurrence: None)
  Receive Date: 20220210
  Receipt Date: 20220211
  Transmission Date: 20220424
  Serious: Yes (Hospitalization)
  Sender: FDA-Public Use
  Company Number: CN-ROCHE-3011650

PATIENT
  Age: 68 Year
  Sex: Male
  Weight: 67.8 kg

DRUGS (5)
  1. NINTEDANIB [Suspect]
     Active Substance: NINTEDANIB
     Indication: Idiopathic pulmonary fibrosis
     Dosage: DOSE LAST STUDY DRUG ADMIN PRIOR SAE IS 100 MG ON 23/JAN/2022.
     Route: 048
     Dates: start: 201905
  2. ACETYLCYSTEINE [Concomitant]
     Active Substance: ACETYLCYSTEINE
     Dosage: ONGOING: YES
     Route: 048
     Dates: start: 2019
  3. COMPOUND LIQUORICE [Concomitant]
     Dosage: DOSAGE: 4 TABLETS; ONGOING: YES
     Route: 048
     Dates: start: 2021
  4. BICYCLOL [Concomitant]
     Active Substance: BICYCLOL
     Dosage: ONGOING: YES
     Route: 048
     Dates: start: 20211230
  5. OXYGEN [Concomitant]
     Active Substance: OXYGEN
     Route: 055
     Dates: start: 2019

REACTIONS (1)
  - Muscle injury [Recovering/Resolving]

NARRATIVE: CASE EVENT DATE: 20220124
